FAERS Safety Report 9858948 (Version 1)
Quarter: 2014Q1

REPORT INFORMATION
  Report Type: Spontaneous
  Country: US (occurrence: US)
  Receive Date: 20140131
  Receipt Date: 20140131
  Transmission Date: 20141002
  Serious: Yes (Death)
  Sender: FDA-Public Use
  Company Number: CHPA2014US001711

PATIENT
  Age: 41 Year
  Sex: Female

DRUGS (3)
  1. ACETAMINOPHEN (PARACETAMOL) [Suspect]
     Route: 048
  2. AMITRIPTYLINE [Suspect]
     Route: 048
  3. ETHANOL [Suspect]
     Route: 048

REACTIONS (1)
  - Completed suicide [Fatal]
